FAERS Safety Report 7604774-8 (Version None)
Quarter: 2011Q3

REPORT INFORMATION
  Report Type: 
  Country: None (occurrence: None)
  Receive Date: 20110712
  Receipt Date: 20110701
  Transmission Date: 20111222
  Serious: Yes (Other)
  Sender: FDA-Public Use
  Company Number: PHEH2010US03123

PATIENT
  Sex: Male

DRUGS (1)
  1. ZOMETA [Suspect]
     Dosage: UNK

REACTIONS (16)
  - HAND FRACTURE [None]
  - PNEUMONIA [None]
  - RIB FRACTURE [None]
  - AORTIC DISORDER [None]
  - OSTEONECROSIS OF JAW [None]
  - DEFORMITY [None]
  - PULMONARY EMBOLISM [None]
  - LYMPHADENOPATHY [None]
  - INFECTION [None]
  - INJURY [None]
  - ANXIETY [None]
  - PAIN [None]
  - EMOTIONAL DISTRESS [None]
  - CARDIOMEGALY [None]
  - PLEURAL EFFUSION [None]
  - ATELECTASIS [None]
